FAERS Safety Report 6748879-2 (Version None)
Quarter: 2010Q2

REPORT INFORMATION
  Report Type: 
  Country: None (occurrence: None)
  Receive Date: 20100601
  Receipt Date: 20100525
  Transmission Date: 20101027
  Serious: Yes (Death, Hospitalization, Other)
  Sender: FDA-Public Use
  Company Number: HU-ELI_LILLY_AND_COMPANY-HU201004007268

PATIENT
  Age: 69 Year
  Sex: Female

DRUGS (15)
  1. XIGRIS [Suspect]
     Indication: SEPTIC SHOCK
     Dosage: 24 MG/KG, EVERY HOUR
     Route: 042
     Dates: start: 20100329, end: 20100329
  2. XIGRIS [Suspect]
     Dosage: 24 MG/KG, EVERY HOUR
     Route: 042
     Dates: start: 20100330, end: 20100402
  3. CLAFORAN [Concomitant]
     Dates: end: 20100101
  4. KLION                              /00012501/ [Concomitant]
     Dates: end: 20100101
  5. TAZOCIN [Concomitant]
  6. FRAXIPARINE [Concomitant]
  7. ASPISOL [Concomitant]
  8. CONTROLOC [Concomitant]
  9. MAGNESIUM SULFATE [Concomitant]
  10. SOLUTIONS FOR PARENTERAL NUTRITION [Concomitant]
  11. FLUIMUCIL                               /NET/ [Concomitant]
  12. THEOSPIREX [Concomitant]
  13. ARTERENOL [Concomitant]
  14. CORDARONE [Concomitant]
  15. SUFENTANIL [Concomitant]

REACTIONS (3)
  - BRONCHOPNEUMONIA [None]
  - LEFT VENTRICULAR HYPERTROPHY [None]
  - THROMBOCYTOPENIA [None]
